FAERS Safety Report 4665809-8 (Version None)
Quarter: 2005Q2

REPORT INFORMATION
  Report Type: 
  Country: None (occurrence: None)
  Receive Date: 20050519
  Receipt Date: 20050204
  Transmission Date: 20051028
  Serious: No
  Sender: FDA-Public Use
  Company Number: US-GLAXOSMITHKLINE-A0543971A

PATIENT
  Age: 49 Year
  Sex: Male

DRUGS (10)
  1. AVODART [Suspect]
     Indication: BENIGN PROSTATIC HYPERPLASIA
     Dosage: 5MG PER DAY
     Route: 048
  2. PLAVIX [Concomitant]
  3. METOPROLOL [Concomitant]
  4. LIPITOR [Concomitant]
  5. ASPIRIN [Concomitant]
  6. ZYRTEC [Concomitant]
  7. NAPROXEN SODIUM [Concomitant]
  8. NEXIUM [Concomitant]
  9. FIBERCON [Concomitant]
  10. VOLMAX [Concomitant]

REACTIONS (3)
  - BREAST HYPERPLASIA [None]
  - BREAST TENDERNESS [None]
  - DIZZINESS [None]
